FAERS Safety Report 5047268-9 (Version None)
Quarter: 2006Q3

REPORT INFORMATION
  Report Type: 
  Country: None (occurrence: None)
  Receive Date: 20060703
  Receipt Date: 20060619
  Transmission Date: 20061208
  Serious: Yes (Other)
  Sender: FDA-Public Use
  Company Number: 02100-JPN-06-0244

PATIENT
  Age: 77 Year
  Sex: Male

DRUGS (7)
  1. CILOSTAZOL [Suspect]
     Indication: CEREBRAL INFARCTION
     Dosage: 200 MG
     Route: 048
     Dates: start: 20060522, end: 20060524
  2. FAMOTIDINE [Concomitant]
  3. ASPIRIN [Concomitant]
  4. PRAVASTATIN SODIUM [Concomitant]
  5. FLUVOXAMINE MALEATE [Concomitant]
  6. MAGNESIUM OXIDE [Concomitant]
  7. ETIZOLAM [Concomitant]

REACTIONS (11)
  - BALANCE DISORDER [None]
  - BLOOD PRESSURE DECREASED [None]
  - CEREBROVASCULAR DISORDER [None]
  - DECREASED APPETITE [None]
  - DEPRESSED LEVEL OF CONSCIOUSNESS [None]
  - DYSKINESIA [None]
  - DYSSTASIA [None]
  - FALL [None]
  - FEELING ABNORMAL [None]
  - PARALYSIS [None]
  - TACHYCARDIA [None]
